FAERS Safety Report 7506637-5 (Version None)
Quarter: 2011Q2

REPORT INFORMATION
  Report Type: 
  Country: None (occurrence: None)
  Receive Date: 20110526
  Receipt Date: 20110511
  Transmission Date: 20111010
  Serious: Yes (Hospitalization)
  Sender: FDA-Public Use
  Company Number: PL-JNJFOC-20110510842

PATIENT
  Sex: Male

DRUGS (8)
  1. CETIRIZINE HYDROCHLORIDE [Suspect]
     Indication: DERMATITIS ALLERGIC
     Route: 048
     Dates: start: 20101104
  2. LORATADINE [Suspect]
     Indication: DERMATITIS ALLERGIC
     Route: 048
     Dates: start: 20101104
  3. MOMETASONE FUROATE [Suspect]
     Indication: DERMATITIS ALLERGIC
     Route: 061
     Dates: start: 20101104, end: 20101109
  4. INVESTIGATIONAL DRUG [Suspect]
     Indication: ASTHMA
     Route: 055
     Dates: start: 20100624
  5. DEXAMETHASONE [Suspect]
     Indication: DERMATITIS ALLERGIC
     Route: 061
     Dates: start: 20101104, end: 20101110
  6. CETIRIZINE HYDROCHLORIDE [Suspect]
     Route: 048
  7. PHENAZOLINUM [Suspect]
     Indication: DERMATITIS ALLERGIC
     Route: 030
     Dates: start: 20101104, end: 20101109
  8. TACROLIMUS [Suspect]
     Indication: DERMATITIS ALLERGIC
     Route: 061
     Dates: start: 20101104

REACTIONS (1)
  - DERMATITIS ALLERGIC [None]
